FAERS Safety Report 16127178 (Version 1)
Quarter: 2019Q1

REPORT INFORMATION
  Report Type: Spontaneous
  Country: SE (occurrence: SE)
  Receive Date: 20190328
  Receipt Date: 20190328
  Transmission Date: 20190418
  Serious: Yes (Other)
  Sender: FDA-Public Use
  Company Number: SE-ALK-ABELLO A/S-2019AA001185

PATIENT

DRUGS (1)
  1. ACARIZAX 12 SQ-HDM [Suspect]
     Active Substance: DERMATOPHAGOIDES FARINAE\DERMATOPHAGOIDES PTERONYSSINUS
     Indication: PRODUCT USED FOR UNKNOWN INDICATION
     Dosage: UNK
     Dates: start: 201803, end: 201806

REACTIONS (3)
  - Urinary retention [Not Recovered/Not Resolved]
  - Micturition disorder [Not Recovered/Not Resolved]
  - Urine flow decreased [Not Recovered/Not Resolved]

NARRATIVE: CASE EVENT DATE: 2018
